FAERS Safety Report 24031826 (Version 2)
Quarter: 2025Q2

REPORT INFORMATION
  Report Type: Spontaneous
  Country: US (occurrence: US)
  Receive Date: 20240629
  Receipt Date: 20250610
  Transmission Date: 20250716
  Serious: Yes (Other)
  Sender: AUROBINDO
  Company Number: US-MLMSERVICE-20240613-PI097336-00317-2

PATIENT
  Age: 76 Year
  Sex: Female

DRUGS (1)
  1. TOBRAMYCIN [Suspect]
     Active Substance: TOBRAMYCIN
     Indication: Pneumonia pseudomonal

REACTIONS (2)
  - Acute kidney injury [Recovered/Resolved]
  - Oedema peripheral [Recovered/Resolved]
